FAERS Safety Report 12253318 (Version 2)
Quarter: 2016Q4

REPORT INFORMATION
  Report Type: Spontaneous
  Country: US (occurrence: US)
  Receive Date: 20160411
  Receipt Date: 20161212
  Transmission Date: 20170207
  Serious: Yes (Other)
  Sender: FDA-Public Use
  Company Number: US-ELI_LILLY_AND_COMPANY-US201604000367

PATIENT
  Sex: Female

DRUGS (2)
  1. CYMBALTA [Suspect]
     Active Substance: DULOXETINE HYDROCHLORIDE
     Indication: DEPRESSION
  2. CYMBALTA [Suspect]
     Active Substance: DULOXETINE HYDROCHLORIDE
     Indication: PAIN

REACTIONS (13)
  - Paraesthesia [Unknown]
  - Anxiety [Unknown]
  - Crying [Unknown]
  - Sleep disorder [Unknown]
  - Suicide attempt [Unknown]
  - Dysphoria [Unknown]
  - Affect lability [Unknown]
  - Drug withdrawal syndrome [Unknown]
  - Lethargy [Unknown]
  - Fatigue [Unknown]
  - Nightmare [Unknown]
  - Nausea [Unknown]
  - Suicidal ideation [Unknown]
